FAERS Safety Report 7479597-3 (Version None)
Quarter: 2011Q2

REPORT INFORMATION
  Report Type: 
  Country: None (occurrence: None)
  Receive Date: 20110513
  Receipt Date: 20110103
  Transmission Date: 20111010
  Serious: Yes (Other)
  Sender: FDA-Public Use
  Company Number: US-BAYER-201028690NA

PATIENT
  Age: 21 Year
  Sex: Female
  Weight: 60.771 kg

DRUGS (5)
  1. ORAL CONTRACEPTIVE NOS [Concomitant]
     Route: 048
  2. YASMIN [Suspect]
     Indication: CONTRACEPTION
     Dosage: UNK
     Route: 048
     Dates: start: 20011201, end: 20020101
  3. ZANTAC [Concomitant]
     Indication: GASTROOESOPHAGEAL REFLUX DISEASE
     Dosage: UNK UNK, PRN
     Route: 048
     Dates: start: 20000101
  4. UNCODEABLE ^UNCLASSIFIABLE^ [Concomitant]
  5. NSAID'S [Concomitant]
     Dosage: UNK UNK, PRN

REACTIONS (5)
  - CEREBELLAR HAEMORRHAGE [None]
  - RECTAL HAEMORRHAGE [None]
  - GALLBLADDER DISORDER [None]
  - PANCREATITIS [None]
  - GALLBLADDER INJURY [None]
